FAERS Safety Report 11106311 (Version 1)
Quarter: 2015Q2

REPORT INFORMATION
  Report Type: Spontaneous
  Country: US (occurrence: None)
  Receive Date: 20150511
  Receipt Date: 20150511
  Transmission Date: 20150821
  Serious: Yes (Hospitalization)
  Sender: FDA-Public Use
  Company Number: US-2015CRT000331

PATIENT
  Age: 65 Year
  Sex: Female

DRUGS (7)
  1. SPIRONOLACTONE (SPIRONOLACTONE) [Concomitant]
     Active Substance: SPIRONOLACTONE
  2. METFORMIN [Concomitant]
     Active Substance: METFORMIN HYDROCHLORIDE
  3. SYNTHYROID (LEVOTHYROXINE SODIUM) [Concomitant]
  4. KORLYM [Suspect]
     Active Substance: MIFEPRISTONE
     Indication: CUSHING^S SYNDROME
     Route: 048
     Dates: start: 201402, end: 201409
  5. CARVEDILOL (CARVEDILOL) [Concomitant]
     Active Substance: CARVEDILOL
  6. INSULIN (INSULIN) [Concomitant]
     Active Substance: INSULIN NOS
  7. LOSARTAN (LOSARTAN) [Concomitant]
     Active Substance: LOSARTAN

REACTIONS (4)
  - Nausea [None]
  - Vomiting [None]
  - Asthenia [None]
  - Brain neoplasm [None]

NARRATIVE: CASE EVENT DATE: 201403
